FAERS Safety Report 7535576-9 (Version None)
Quarter: 2011Q2

REPORT INFORMATION
  Report Type: 
  Country: None (occurrence: None)
  Receive Date: 20110609
  Receipt Date: 20110526
  Transmission Date: 20111010
  Serious: Yes (Other)
  Sender: FDA-Public Use
  Company Number: US-BAYER-201035800NA

PATIENT
  Age: 38 Year
  Sex: Female
  Weight: 65.909 kg

DRUGS (5)
  1. CLARITIN [Concomitant]
  2. YAZ [Suspect]
     Indication: PRODUCT USED FOR UNKNOWN INDICATION
     Route: 048
  3. DROSPIRENONE AND ETHINYL ESTRADIOL [Suspect]
     Indication: PRODUCT USED FOR UNKNOWN INDICATION
     Route: 048
  4. YASMIN [Suspect]
     Indication: PREMENSTRUAL SYNDROME
     Route: 048
     Dates: start: 20020101
  5. YASMIN [Suspect]
     Dosage: UNK
     Dates: start: 20020219, end: 20020518

REACTIONS (5)
  - PULMONARY EMBOLISM [None]
  - PULMONARY INFARCTION [None]
  - LOBAR PNEUMONIA [None]
  - TRAUMATIC LUNG INJURY [None]
  - INJURY [None]
